FAERS Safety Report 9868072 (Version 6)
Quarter: 2014Q1

REPORT INFORMATION
  Report Type: Report from Study
  Country: US (occurrence: US)
  Receive Date: 20140204
  Receipt Date: 20140307
  Transmission Date: 20141002
  Serious: Yes (Hospitalization)
  Sender: FDA-Public Use
  Company Number: US-ACTELION-A-US2014-94499

PATIENT
  Age: 79 Year
  Sex: Male

DRUGS (2)
  1. VENTAVIS [Suspect]
     Indication: PULMONARY ARTERIAL HYPERTENSION
     Dosage: UNK, 6X/DAY
     Route: 055
     Dates: start: 2011
  2. COUMADIN [Concomitant]

REACTIONS (4)
  - Dysuria [Unknown]
  - Stomatitis [Recovered/Resolved]
  - Hypertension [Recovering/Resolving]
  - Respiratory failure [Recovered/Resolved]
